FAERS Safety Report 25419001 (Version 1)
Quarter: 2025Q2

REPORT INFORMATION
  Report Type: Spontaneous
  Country: FR (occurrence: FR)
  Receive Date: 20250610
  Receipt Date: 20250610
  Transmission Date: 20250716
  Serious: Yes (Congenital Anomaly)
  Sender: VERTEX
  Company Number: None

PATIENT
  Age: 1 Day
  Sex: Male
  Weight: 3.49 kg

DRUGS (2)
  1. ELEXACAFTOR\IVACAFTOR\TEZACAFTOR [Suspect]
     Active Substance: ELEXACAFTOR\IVACAFTOR\TEZACAFTOR
     Indication: Cystic fibrosis
     Dosage: 2 TABS
     Route: 048
     Dates: start: 20220228, end: 20221119
  2. KALYDECO [Suspect]
     Active Substance: IVACAFTOR
     Indication: Cystic fibrosis
     Dosage: 1 TAB
     Route: 048
     Dates: start: 20220228, end: 20221119

REACTIONS (1)
  - Macrocephaly [Not Recovered/Not Resolved]

NARRATIVE: CASE EVENT DATE: 20221119
